FAERS Safety Report 7737479-3 (Version None)
Quarter: 2011Q3

REPORT INFORMATION
  Report Type: 
  Country: None (occurrence: None)
  Receive Date: 20110908
  Receipt Date: 20110906
  Transmission Date: 20111222
  Serious: Yes (Other)
  Sender: FDA-Public Use
  Company Number: CA-GLAXOSMITHKLINE-A0943432A

PATIENT
  Sex: Male
  Weight: 40.9 kg

DRUGS (3)
  1. ADVAIR DISKUS 100/50 [Suspect]
     Indication: EMPHYSEMA
     Dosage: 1PUFF TWICE PER DAY
     Route: 055
  2. UNSPECIFIED MEDICATION [Concomitant]
     Indication: DEPRESSION
  3. GABAPENTIN [Concomitant]
     Indication: PAIN

REACTIONS (5)
  - HUNGER [None]
  - VISUAL IMPAIRMENT [None]
  - UNDERWEIGHT [None]
  - LOSS OF CONSCIOUSNESS [None]
  - DIZZINESS [None]
